FAERS Safety Report 6269314-7 (Version None)
Quarter: 2009Q3

REPORT INFORMATION
  Report Type: 
  Country: None (occurrence: None)
  Receive Date: 20090715
  Receipt Date: 20090713
  Transmission Date: 20100115
  Serious: Yes (Other)
  Sender: FDA-Public Use
  Company Number: GB-ABBOTT-09P-167-0584705-00

PATIENT
  Age: 15 Year
  Sex: Male

DRUGS (4)
  1. DEPAKOTE [Suspect]
     Indication: MANIA
     Dosage: DAILY
     Route: 048
  2. LORAZEPAM [Concomitant]
     Indication: DRUG USE FOR UNKNOWN INDICATION
  3. RISPERIDONE [Concomitant]
     Indication: DRUG USE FOR UNKNOWN INDICATION
  4. FLUOXETINE HCL [Concomitant]
     Indication: DRUG USE FOR UNKNOWN INDICATION

REACTIONS (2)
  - DRUG WITHDRAWAL CONVULSIONS [None]
  - NEUTROPHIL COUNT DECREASED [None]
